FAERS Safety Report 24228773 (Version 2)
Quarter: 2024Q3

REPORT INFORMATION
  Report Type: Spontaneous
  Country: ES (occurrence: ES)
  Receive Date: 20240820
  Receipt Date: 20240905
  Transmission Date: 20241017
  Serious: Yes (Other)
  Sender: TEVA
  Company Number: ES-TEVA-VS-3233441

PATIENT
  Age: 13 Year
  Sex: Male

DRUGS (2)
  1. CARBOPLATIN [Suspect]
     Active Substance: CARBOPLATIN
     Indication: Astrocytoma, low grade
     Dosage: SIOP-LGG 2004
     Route: 065
     Dates: start: 201903, end: 201905
  2. VINCRISTINE [Suspect]
     Active Substance: VINCRISTINE
     Indication: Astrocytoma, low grade
     Dosage: SIOP-LGG 2004
     Route: 065
     Dates: start: 201903, end: 201905

REACTIONS (6)
  - Drug ineffective [Unknown]
  - Thrombocytopenia [Unknown]
  - Constipation [Unknown]
  - Fatigue [Unknown]
  - Neutropenia [Unknown]
  - Peripheral sensorimotor neuropathy [Unknown]

NARRATIVE: CASE EVENT DATE: 20190501
